FAERS Safety Report 9433899 (Version 1)
Quarter: 2013Q3

REPORT INFORMATION
  Report Type: Spontaneous
  Country: CA (occurrence: CA)
  Receive Date: 20130801
  Receipt Date: 20130801
  Transmission Date: 20140515
  Serious: Yes (Other)
  Sender: FDA-Public Use
  Company Number: PHHY2013CA079116

PATIENT
  Age: 28 Year
  Sex: Female

DRUGS (2)
  1. OXYTOCIN [Suspect]
     Indication: LABOUR INDUCTION
     Dosage: UNK
     Route: 042
  2. METOPROLOL [Suspect]
     Dosage: 100 MG, BID

REACTIONS (3)
  - Uterine atony [Unknown]
  - Maternal exposure during pregnancy [Unknown]
  - Normal newborn [Unknown]
